FAERS Safety Report 19608198 (Version 1)
Quarter: 2021Q3

REPORT INFORMATION
  Report Type: Spontaneous
  Country: NL (occurrence: NL)
  Receive Date: 20210726
  Receipt Date: 20210726
  Transmission Date: 20211014
  Serious: Yes (Other)
  Sender: FDA-Public Use
  Company Number: NL-TEVA-2021-NL-1934981

PATIENT
  Sex: Female

DRUGS (1)
  1. AMOXICILLINE CAPSULE 500MG / BRAND NAME NOT SPECIFIED [Suspect]
     Active Substance: AMOXICILLIN
     Indication: PRODUCT USED FOR UNKNOWN INDICATION
     Dosage: THERAPY END DATE ASKU
     Route: 065
     Dates: start: 1985

REACTIONS (2)
  - Hypersensitivity [Recovered/Resolved]
  - Angioedema [Recovered/Resolved]
